FAERS Safety Report 4718105-4 (Version None)
Quarter: 2005Q3

REPORT INFORMATION
  Report Type: 
  Country: None (occurrence: None)
  Receive Date: 20050720
  Receipt Date: 20050711
  Transmission Date: 20060218
  Serious: Yes (Other)
  Sender: FDA-Public Use
  Company Number: AU-BRISTOL-MYERS SQUIBB COMPANY-13034368

PATIENT
  Age: 65 Year
  Sex: Male

DRUGS (1)
  1. KARVEA [Suspect]
     Indication: HYPERTENSION
     Route: 048
     Dates: start: 20050711

REACTIONS (3)
  - CIRCULATORY COLLAPSE [None]
  - LOSS OF CONSCIOUSNESS [None]
  - TREMOR [None]
